FAERS Safety Report 5811144-1 (Version None)
Quarter: 2008Q3

REPORT INFORMATION
  Report Type: 
  Country: None (occurrence: None)
  Receive Date: 20080716
  Receipt Date: 20080707
  Transmission Date: 20090109
  Serious: Yes (Other)
  Sender: FDA-Public Use
  Company Number: US-JNJFOC-20080100973

PATIENT
  Sex: Female
  Weight: 80.74 kg

DRUGS (17)
  1. REMICADE [Suspect]
     Dosage: 2ND INFUSION
     Route: 042
  2. REMICADE [Suspect]
     Indication: RHEUMATOID ARTHRITIS
     Route: 042
  3. FLUOCINONIDE [Concomitant]
  4. ULTRAM [Concomitant]
  5. ATACAND [Concomitant]
  6. METHOTREXATE [Concomitant]
  7. MOBIC [Concomitant]
  8. ZOLOFT [Concomitant]
  9. METFORMIN [Concomitant]
  10. DOXEPIN HCL [Concomitant]
     Indication: PRURITUS
  11. ALLEGRA [Concomitant]
  12. NEXIUM [Concomitant]
  13. FOLIC ACID [Concomitant]
  14. BONIVA [Concomitant]
  15. LIPOFLAVANOID [Concomitant]
  16. K-DUR [Concomitant]
  17. LASIX [Concomitant]

REACTIONS (1)
  - RENAL DISORDER [None]
